FAERS Safety Report 5232432-6 (Version None)
Quarter: 2007Q1

REPORT INFORMATION
  Report Type: 
  Country: None (occurrence: None)
  Receive Date: 20070205
  Receipt Date: 20070119
  Transmission Date: 20070707
  Serious: Yes (Life-Threatening, Hospitalization, Disabling, Other)
  Sender: FDA-Public Use
  Company Number: DSA_29265_2007

PATIENT
  Age: 47 Year
  Sex: Female

DRUGS (10)
  1. CO-RENITEC [Suspect]
     Indication: HYPERTENSION
     Dosage: DF
     Dates: start: 19960101, end: 20061201
  2. MYLANTA PLUS [Suspect]
     Indication: ABDOMINAL PAIN UPPER
     Dosage: DF PO
     Route: 048
     Dates: start: 19960101
  3. MYLANTA PLUS [Suspect]
     Indication: ABDOMINAL PAIN UPPER
     Dosage: VAR PRN PO
     Route: 048
     Dates: start: 20060401, end: 20061101
  4. ALIMTA [Suspect]
     Indication: LUNG NEOPLASM MALIGNANT
     Dosage: DF
     Dates: start: 20060401
  5. CHEMOTHERAPY NOS [Suspect]
     Indication: DRUG USE FOR UNKNOWN INDICATION
     Dosage: DF
     Dates: start: 20040101
  6. CHEMOTHERAPY NOS [Suspect]
     Indication: DRUG USE FOR UNKNOWN INDICATION
     Dosage: 1 DF QWK
     Dates: start: 20060101
  7. PROZAC [Suspect]
     Indication: DEPRESSION
     Dosage: DF
     Dates: start: 20010101
  8. TAGAMET [Concomitant]
  9. ANTIBIOTIC DRUGS [Concomitant]
  10. FILGRASTIM [Concomitant]

REACTIONS (23)
  - ABASIA [None]
  - ABDOMINAL PAIN UPPER [None]
  - ALOPECIA [None]
  - BLADDER CANCER [None]
  - CONSTIPATION [None]
  - DEPRESSION [None]
  - DISEASE RECURRENCE [None]
  - DRUG INEFFECTIVE [None]
  - DYSPEPSIA [None]
  - ERYTHEMA [None]
  - FLATULENCE [None]
  - HYPERSENSITIVITY [None]
  - IMMUNOSUPPRESSION [None]
  - INSOMNIA [None]
  - KIDNEY INFECTION [None]
  - MALAISE [None]
  - METASTASES TO LUNG [None]
  - OBSTRUCTIVE UROPATHY [None]
  - ORAL MUCOSAL DISCOLOURATION [None]
  - THROMBOCYTOPENIA [None]
  - TUMOUR NECROSIS [None]
  - URINARY INCONTINENCE [None]
  - WEIGHT INCREASED [None]
